FAERS Safety Report 8154313-0 (Version None)
Quarter: 2012Q1

REPORT INFORMATION
  Report Type: 
  Country: None (occurrence: None)
  Receive Date: 20120221
  Receipt Date: 20120208
  Transmission Date: 20120608
  Serious: Yes (Hospitalization, Other)
  Sender: FDA-Public Use
  Company Number: JP-ACTELION-A-CH2012-60959

PATIENT
  Age: 23 Year
  Sex: Male

DRUGS (3)
  1. OXYGEN [Concomitant]
  2. TRACLEER [Suspect]
     Indication: PULMONARY HYPERTENSION
     Dosage: UNK
     Route: 048
  3. BERAPROST [Concomitant]

REACTIONS (5)
  - EXERCISE TEST ABNORMAL [None]
  - BRAIN NATRIURETIC PEPTIDE INCREASED [None]
  - DISEASE PROGRESSION [None]
  - OEDEMA [None]
  - PULMONARY ARTERIAL HYPERTENSION [None]
